FAERS Safety Report 10815262 (Version 5)
Quarter: 2015Q1

REPORT INFORMATION
  Report Type: Report from Study
  Country: ES (occurrence: ES)
  Receive Date: 20150218
  Receipt Date: 20150323
  Transmission Date: 20150721
  Serious: Yes (Life-Threatening, Hospitalization, Other)
  Sender: FDA-Public Use
  Company Number: ES-AMGEN-ESPSL2015013757

PATIENT
  Age: 88 Year
  Sex: Female
  Weight: 70 kg

DRUGS (15)
  1. ROCALTROL [Concomitant]
     Active Substance: CALCITRIOL
     Dosage: 0.25 MUG, 3 UNIT EVERY WEEK
     Route: 048
     Dates: start: 201305
  2. UNIKET [Concomitant]
     Active Substance: ISOSORBIDE MONONITRATE
     Dosage: 20 MG, 1 UNIT Q8H
     Route: 048
     Dates: start: 201401
  3. FUROSEMIDA SANDOZ [Concomitant]
     Active Substance: FUROSEMIDE
     Dosage: 40 MG, 1 UNIT
     Route: 048
     Dates: start: 201401
  4. CARDURA [Concomitant]
     Active Substance: DOXAZOSIN MESYLATE
     Dosage: 4 MG, 1 UNIT QD
     Route: 048
     Dates: start: 201401
  5. HYDRAPRES [Concomitant]
     Dosage: 25 MG, 1 UNIT TID
     Route: 048
     Dates: start: 201401
  6. PARACETAMOL KERN PHARMA [Concomitant]
     Dosage: 1 G, Q4H
     Route: 048
     Dates: start: 201305
  7. BISOPROLOL TEVA [Concomitant]
     Active Substance: BISOPROLOL
     Dosage: 2.5 MG, 1 UNIT QD
     Route: 048
     Dates: start: 201408
  8. LOVASTATINA KERN [Concomitant]
     Dosage: 20 MG, 1 UNIT Q4H
     Route: 048
     Dates: start: 201305
  9. ALDACTONE [Concomitant]
     Active Substance: SPIRONOLACTONE
     Dosage: 25 MG, 0.5 UNIT QD
     Route: 048
     Dates: start: 201408
  10. ALOPURINOL NORMON [Concomitant]
     Dosage: 100 MG, 1 UNIT
     Route: 048
     Dates: start: 201305
  11. ARANESP [Suspect]
     Active Substance: DARBEPOETIN ALFA
     Indication: PRODUCT USED FOR UNKNOWN INDICATION
     Dosage: UNK UNK, QMO
     Route: 058
     Dates: start: 201411
  12. ACFOL [Concomitant]
     Active Substance: FOLIC ACID
     Dosage: 5 MG, 1 UNIT QD
     Route: 048
     Dates: start: 201403
  13. IDAPTAN [Concomitant]
     Dosage: 2 UNIT EVERY DAY
     Route: 048
     Dates: start: 201305
  14. INSULATARD                         /00646002/ [Concomitant]
     Active Substance: INSULIN NOS
     Dosage: 100 UI/ML,1 UNIT  Q4H
     Dates: start: 201305
  15. TRYPTIZOL [Concomitant]
     Active Substance: AMITRIPTYLINE HYDROCHLORIDE
     Dosage: 25 MG, 1 UNIT
     Route: 048
     Dates: start: 201403

REACTIONS (5)
  - Tremor [Not Recovered/Not Resolved]
  - General physical health deterioration [Not Recovered/Not Resolved]
  - Weight increased [Unknown]
  - Vomiting [Not Recovered/Not Resolved]
  - Abdominal pain [Unknown]

NARRATIVE: CASE EVENT DATE: 20150210
